APPROVED DRUG PRODUCT: LABETALOL HYDROCHLORIDE
Active Ingredient: LABETALOL HYDROCHLORIDE
Strength: 5MG/ML
Dosage Form/Route: INJECTABLE;INJECTION
Application: A214533 | Product #001 | TE Code: AP
Applicant: CAPLIN STERILES LTD
Approved: Sep 7, 2021 | RLD: No | RS: No | Type: RX